FAERS Safety Report 16080379 (Version 2)
Quarter: 2019Q2

REPORT INFORMATION
  Report Type: Spontaneous
  Country: US (occurrence: US)
  Receive Date: 20190315
  Receipt Date: 20190606
  Transmission Date: 20190711
  Serious: No
  Sender: FDA-Public Use
  Company Number: US-PTC THERAPEUTICS, INC.-US-2018PTC001522

PATIENT
  Age: 5 Year
  Sex: Male
  Weight: 31.75 kg

DRUGS (4)
  1. EMFLAZA [Suspect]
     Active Substance: DEFLAZACORT
     Dosage: 18 MG, QD
     Route: 048
     Dates: start: 20180105
  2. EMFLAZA [Suspect]
     Active Substance: DEFLAZACORT
     Indication: DUCHENNE MUSCULAR DYSTROPHY
     Dosage: 9 MG (1/2 OF 18 MG) ON MONDAY-WEDNESDAY-FRIDAY
     Route: 048
  3. EMFLAZA [Suspect]
     Active Substance: DEFLAZACORT
     Dosage: 54 MG (3 X 18 MG PILLS) ON WEEKENDS
     Route: 048
  4. EMFLAZA [Suspect]
     Active Substance: DEFLAZACORT
     Dosage: 18 MG EVERY OTHER DAY + 1.5 PILLS ON WEEKENDS
     Route: 048

REACTIONS (3)
  - Weight increased [Not Recovered/Not Resolved]
  - Growth retardation [Not Recovered/Not Resolved]
  - Off label use [Unknown]

NARRATIVE: CASE EVENT DATE: 2018
